FAERS Safety Report 5743240-1 (Version None)
Quarter: 2008Q2

REPORT INFORMATION
  Report Type: 
  Country: None (occurrence: None)
  Receive Date: 20080519
  Receipt Date: 20080512
  Transmission Date: 20081010
  Serious: Yes (Other)
  Sender: FDA-Public Use
  Company Number: US-GENENTECH-260364

PATIENT
  Sex: Female
  Weight: 74.4 kg

DRUGS (11)
  1. XOLAIR [Suspect]
     Indication: ASTHMA
     Dosage: UNK MG, UNK
     Route: 058
     Dates: start: 20080328, end: 20080422
  2. PREDNISONE TAB [Concomitant]
     Indication: DRUG USE FOR UNKNOWN INDICATION
     Dosage: 90 MG, UNK
  3. ALBUTEROL [Concomitant]
     Indication: DRUG USE FOR UNKNOWN INDICATION
  4. CROMOLYN SODIUM [Concomitant]
     Indication: DRUG USE FOR UNKNOWN INDICATION
     Dosage: UNK, BID
  5. FLONASE [Concomitant]
     Indication: DRUG USE FOR UNKNOWN INDICATION
  6. ALLEGRA [Concomitant]
     Indication: DRUG USE FOR UNKNOWN INDICATION
  7. FLOVENT [Concomitant]
     Indication: DRUG USE FOR UNKNOWN INDICATION
     Dosage: UNK, BID
  8. NEXIUM [Concomitant]
     Indication: DRUG USE FOR UNKNOWN INDICATION
     Dosage: 20 MG, UNK
  9. SYMBICORT [Concomitant]
     Indication: DRUG USE FOR UNKNOWN INDICATION
  10. THEOPHYLLINE [Concomitant]
     Indication: DRUG USE FOR UNKNOWN INDICATION
  11. VENTOLIN [Concomitant]
     Indication: DRUG USE FOR UNKNOWN INDICATION
     Dosage: UNK, PRN

REACTIONS (4)
  - ARTHRALGIA [None]
  - INJECTION SITE SWELLING [None]
  - PYREXIA [None]
  - SWOLLEN TONGUE [None]
